FAERS Safety Report 14204075 (Version 1)
Quarter: 2017Q4

REPORT INFORMATION
  Report Type: Spontaneous
  Country: US (occurrence: US)
  Receive Date: 20171117
  Receipt Date: 20171117
  Transmission Date: 20180321
  Serious: Yes (Death)
  Sender: FDA-Public Use
  Company Number: None

PATIENT
  Age: 66 Year
  Sex: Male

DRUGS (9)
  1. DOCUSATE SODIUM. [Concomitant]
     Active Substance: DOCUSATE SODIUM
  2. RISPERIDONE. [Concomitant]
     Active Substance: RISPERIDONE
  3. CENTRUM SILVER [Concomitant]
     Active Substance: MINERALS\VITAMINS
  4. SENSIPAR [Suspect]
     Active Substance: CINACALCET HYDROCHLORIDE
     Indication: CHRONIC KIDNEY DISEASE
     Route: 048
  5. CLOZAPINE. [Concomitant]
     Active Substance: CLOZAPINE
  6. CALCIUM [Concomitant]
     Active Substance: CALCIUM
  7. RENVELA [Concomitant]
     Active Substance: SEVELAMER CARBONATE
  8. LACTULOSE. [Concomitant]
     Active Substance: LACTULOSE
  9. TYLENOL [Concomitant]
     Active Substance: ACETAMINOPHEN

REACTIONS (1)
  - Death [None]
